FAERS Safety Report 12944223 (Version 2)
Quarter: 2017Q1

REPORT INFORMATION
  Report Type: Spontaneous
  Country: NL (occurrence: NL)
  Receive Date: 20161115
  Receipt Date: 20170116
  Transmission Date: 20170428
  Serious: Yes (Death)
  Sender: FDA-Public Use
  Company Number: NL-TOLMAR, INC.-2016NL012031

PATIENT
  Age: 85 Year
  Sex: Male

DRUGS (16)
  1. DIANAVIT [Concomitant]
  2. FLUIMICIL [Concomitant]
     Active Substance: ACETYLCYSTEINE
  3. ELIGARD [Suspect]
     Active Substance: LEUPROLIDE ACETATE
     Dosage: 22.5 MG, Q3MONTHS
     Route: 058
     Dates: start: 20160606
  4. PANTOPRAZOLE SODIUM SESQUIHYDRATE [Concomitant]
     Active Substance: PANTOPRAZOLE SODIUM
  5. ELIGARD [Suspect]
     Active Substance: LEUPROLIDE ACETATE
     Dosage: 22.5 MG, Q3MONTHS
     Route: 058
     Dates: start: 20160905, end: 201610
  6. BUTRANS [Concomitant]
     Active Substance: BUPRENORPHINE
  7. HYDROXOCOBALAMINE [Concomitant]
     Active Substance: HYDROXOCOBALAMIN
  8. ELIGARD [Suspect]
     Active Substance: LEUPROLIDE ACETATE
     Indication: PROSTATE CANCER
     Dosage: 22.5 MG, Q3MONTHS
     Route: 058
     Dates: start: 20111228
  9. BICALUTAMIDE. [Concomitant]
     Active Substance: BICALUTAMIDE
  10. GREPID [Concomitant]
     Active Substance: CLOPIDOGREL BESILATE
  11. FOSINOPRIL [Concomitant]
     Active Substance: FOSINOPRIL
  12. MACROGOL [Concomitant]
     Active Substance: POLYETHYLENE GLYCOLS
  13. LORAZEPAM. [Concomitant]
     Active Substance: LORAZEPAM
  14. METFORMINE HCL [Concomitant]
     Active Substance: METFORMIN HYDROCHLORIDE
  15. AMLODIPINE [Concomitant]
     Active Substance: AMLODIPINE BESYLATE
  16. SIMVASTATINE [Concomitant]
     Active Substance: SIMVASTATIN

REACTIONS (1)
  - Terminal state [Fatal]

NARRATIVE: CASE EVENT DATE: 201612
